FAERS Safety Report 7817704-0 (Version None)
Quarter: 2011Q4

REPORT INFORMATION
  Report Type: 
  Country: None (occurrence: None)
  Receive Date: 20111017
  Receipt Date: 20111007
  Transmission Date: 20120403
  Serious: Yes (Hospitalization)
  Sender: FDA-Public Use
  Company Number: GB-MILLENNIUM PHARMACEUTICALS, INC.-2011-04808

PATIENT

DRUGS (3)
  1. ZOMETA [Concomitant]
     Indication: HYPERCHOLESTEROLAEMIA
     Dosage: 5 MG, UNK
     Route: 048
     Dates: start: 20100101
  2. VELCADE [Suspect]
     Indication: MULTIPLE MYELOMA
     Dosage: 3.5 MG, UNK
     Route: 042
     Dates: start: 20110613, end: 20110809
  3. ROSUVASTATIN [Concomitant]
     Indication: OSTEOPOROSIS
     Dosage: 4 MG, UNK
     Route: 042
     Dates: start: 20060101

REACTIONS (4)
  - BLOOD SODIUM DECREASED [None]
  - ORTHOSTATIC HYPOTENSION [None]
  - INAPPROPRIATE ANTIDIURETIC HORMONE SECRETION [None]
  - CONVULSION [None]
